FAERS Safety Report 4532639-7 (Version None)
Quarter: 2004Q4

REPORT INFORMATION
  Report Type: 
  Country: None (occurrence: None)
  Receive Date: 20041220
  Receipt Date: 20041220
  Transmission Date: 20050328
  Serious: Yes (Other)
  Sender: FDA-Public Use
  Company Number: None

PATIENT
  Age: 52 Year
  Sex: Female
  Weight: 80.9671 kg

DRUGS (2)
  1. CARBOPLATIN [Suspect]
     Dosage: 474 MG / IV
     Route: 042
     Dates: start: 20031124
  2. CARBOPLATIN [Suspect]
     Dosage: 474 MG / IV
     Route: 042
     Dates: start: 20031215

REACTIONS (4)
  - ERYTHEMA [None]
  - FLUSHING [None]
  - PRURITUS [None]
  - VOMITING [None]
